FAERS Safety Report 4932523-0 (Version None)
Quarter: 2006Q1

REPORT INFORMATION
  Report Type: 
  Country: None (occurrence: None)
  Receive Date: 20060303
  Receipt Date: 20051222
  Transmission Date: 20060701
  Serious: Yes (Other)
  Sender: FDA-Public Use
  Company Number: US-MERCK-0512USA03655

PATIENT
  Age: 73 Year
  Sex: Male
  Weight: 102 kg

DRUGS (8)
  1. VIOXX [Suspect]
     Indication: ARTHRALGIA
     Route: 048
     Dates: start: 19990901, end: 20011101
  2. PLAVIX [Concomitant]
     Route: 065
  3. ZOCOR [Concomitant]
     Route: 065
  4. CARDURA [Concomitant]
     Route: 065
  5. DIOVAN [Concomitant]
     Route: 065
  6. PROAMATINE [Concomitant]
     Route: 065
  7. ACTOS [Concomitant]
     Route: 065
  8. LOPRESSOR [Concomitant]
     Route: 065

REACTIONS (1)
  - CEREBROVASCULAR ACCIDENT [None]
